FAERS Safety Report 13650662 (Version 4)
Quarter: 2017Q3

REPORT INFORMATION
  Report Type: Spontaneous
  Country: GB (occurrence: GB)
  Receive Date: 20170614
  Receipt Date: 20170918
  Transmission Date: 20171127
  Serious: Yes (Death, Hospitalization, Other)
  Sender: FDA-Public Use
  Company Number: GB-TEVA-776058ACC

PATIENT
  Age: 50 Year
  Sex: Male

DRUGS (8)
  1. KEYTRUDA [Suspect]
     Active Substance: PEMBROLIZUMAB
     Indication: MALIGNANT MELANOMA STAGE IV
     Dosage: STRENGTH: 2MG/KG, DOSE AS PER LICENSE
     Route: 042
     Dates: start: 20170426, end: 20170426
  2. CYCLIZINE? [Concomitant]
     Indication: NAUSEA
     Dosage: 50 MG, TOTAL DOSE: UPTO 150 MG?
     Route: 065
  3. ACETAMINOPHEN? [Concomitant]
     Indication: PAIN
     Route: 048
  4. DOMPERIDONE? [Concomitant]
     Indication: NAUSEA
     Route: 048
  5. MST CONTINUS? [Concomitant]
     Route: 048
  6. OMEPRAZOLE. [Concomitant]
     Active Substance: OMEPRAZOLE
     Indication: DYSPEPSIA
     Route: 048
  7. DEXAMETHASONE. [Suspect]
     Active Substance: DEXAMETHASONE
     Route: 048
  8. AMITRIPTYLINE HYDROCHLORIDE? [Concomitant]
     Indication: NEURALGIA
     Route: 048

REACTIONS (9)
  - Fatigue [Fatal]
  - Blood test abnormal [Fatal]
  - Pain [Fatal]
  - Hepatic pain [Fatal]
  - Malignant neoplasm progression [Fatal]
  - Liver function test increased [Fatal]
  - Constipation [Fatal]
  - Organ failure [Fatal]
  - Liver function test increased [Fatal]

NARRATIVE: CASE EVENT DATE: 2017
